FAERS Safety Report 26155641 (Version 1)
Quarter: 2025Q4

REPORT INFORMATION
  Report Type: Spontaneous
  Country: GB (occurrence: GB)
  Receive Date: 20251215
  Receipt Date: 20251215
  Transmission Date: 20260117
  Serious: Yes (Other)
  Sender: ALKEM
  Company Number: None

PATIENT
  Age: 44 Year
  Sex: Female
  Weight: 70 kg

DRUGS (3)
  1. TACROLIMUS [Interacting]
     Active Substance: TACROLIMUS
     Indication: Immunosuppression
     Dosage: UNK
     Route: 065
  2. CLARITHROMYCIN [Interacting]
     Active Substance: CLARITHROMYCIN
     Indication: Lower respiratory tract infection
     Dosage: UNK
     Route: 065
     Dates: start: 20210317
  3. CLARITHROMYCIN [Interacting]
     Active Substance: CLARITHROMYCIN
     Indication: Immunosuppression

REACTIONS (4)
  - Drug level increased [Unknown]
  - Drug interaction [Unknown]
  - Medication error [Unknown]
  - Blood creatine increased [Unknown]
